FAERS Safety Report 4897420-8 (Version None)
Quarter: 2006Q1

REPORT INFORMATION
  Report Type: 
  Country: None (occurrence: None)
  Receive Date: 20060130
  Receipt Date: 20060130
  Transmission Date: 20060701
  Serious: Yes (Hospitalization, Disabling)
  Sender: FDA-Public Use
  Company Number: None

PATIENT
  Age: 49 Year
  Sex: Male
  Weight: 83.9154 kg

DRUGS (1)
  1. RAPTIVA [Suspect]
     Indication: PSORIASIS
     Dosage: 0.6ML  WEEKLY  SQ   (ONCE)
     Route: 058
     Dates: start: 20060107, end: 20060107

REACTIONS (3)
  - EYE PAIN [None]
  - HYPERTENSION [None]
  - MENINGITIS ASEPTIC [None]
